FAERS Safety Report 6190159-0 (Version None)
Quarter: 2009Q2

REPORT INFORMATION
  Report Type: 
  Country: None (occurrence: None)
  Receive Date: 20090427
  Receipt Date: 20080812
  Transmission Date: 20091009
  Serious: Yes (Other)
  Sender: FDA-Public Use
  Company Number: WAES 0808USA02122

PATIENT
  Age: 24 Month
  Sex: Female

DRUGS (1)
  1. SINGULAIR [Suspect]
     Dosage: PO
     Route: 048

REACTIONS (1)
  - CONVULSION [None]
